FAERS Safety Report 17533863 (Version 2)
Quarter: 2020Q2

REPORT INFORMATION
  Report Type: Report from Study
  Country: US (occurrence: US)
  Receive Date: 20200312
  Receipt Date: 20200414
  Transmission Date: 20200713
  Serious: Yes (Other)
  Sender: FDA-Public Use
  Company Number: US-MYLANLABS-2020M1027628

PATIENT
  Age: 45 Year
  Sex: Male
  Weight: 73.92 kg

DRUGS (10)
  1. CLOZAPINE. [Suspect]
     Active Substance: CLOZAPINE
     Dosage: 100 MG IN THE MORNING AND 125 MG AT NIGHT
     Route: 048
     Dates: start: 20200314
  2. HALDOL [Concomitant]
     Active Substance: HALOPERIDOL
     Dosage: 5 MG TWICE DAILY
  3. CLOZAPINE. [Suspect]
     Active Substance: CLOZAPINE
     Dosage: 150 MG TWICE PER DAY
     Route: 048
     Dates: start: 20200317
  4. CLOZAPINE. [Suspect]
     Active Substance: CLOZAPINE
     Dosage: 150 MG IN THE MORNING AND 200 MG AT NIGHT
     Route: 048
     Dates: start: 20200322
  5. GLYCOPYRROLATE                     /00196201/ [Concomitant]
     Active Substance: GLYCOPYRRONIUM
     Dosage: 1 MG TWICE DAILY
  6. CLOZAPINE. [Suspect]
     Active Substance: CLOZAPINE
     Dosage: 200 MG ON THE MORNING
     Route: 048
     Dates: start: 20200323
  7. CLOZAPINE. [Suspect]
     Active Substance: CLOZAPINE
     Dosage: 100 MILLIGRAM, BID
     Route: 048
     Dates: start: 20200313
  8. CLOZAPINE. [Suspect]
     Active Substance: CLOZAPINE
     Dosage: 100 MG IN THE MORNING AND 150 MG AT NIGHT
     Route: 048
     Dates: start: 20200315
  9. CLOZAPINE. [Suspect]
     Active Substance: CLOZAPINE
     Indication: SCHIZOPHRENIA
     Dosage: UNK
     Route: 048
  10. CLOZAPINE. [Suspect]
     Active Substance: CLOZAPINE
     Dosage: 125 MG IN THE MORNING AND 150 MG IN THE EVENING
     Route: 048
     Dates: start: 20200316

REACTIONS (1)
  - Constipation [Unknown]

NARRATIVE: CASE EVENT DATE: 202003
